FAERS Safety Report 8451277-7 (Version None)
Quarter: 2012Q2

REPORT INFORMATION
  Report Type: 
  Country: None (occurrence: None)
  Receive Date: 20120620
  Receipt Date: 20120305
  Transmission Date: 20120825
  Serious: No
  Sender: FDA-Public Use
  Company Number: US-VERTEX PHARMACEUTICALS INC.-AE-2012-002237

PATIENT
  Sex: Male
  Weight: 91.254 kg

DRUGS (8)
  1. METHADONE HCL [Concomitant]
     Indication: PAIN
     Route: 048
  2. BUSPAR [Concomitant]
     Indication: ANXIETY
     Route: 048
  3. LISINOPRIL [Concomitant]
     Indication: HYPERTENSION
     Route: 048
  4. PROZAC [Concomitant]
     Indication: DEPRESSION
     Route: 048
  5. COPEGUS [Concomitant]
     Indication: HEPATITIS C
     Route: 048
     Dates: start: 20120103
  6. ABILIFY [Concomitant]
     Indication: BIPOLAR DISORDER
     Route: 048
  7. PEGASYS [Concomitant]
     Indication: HEPATITIS C
     Route: 058
     Dates: start: 20120103
  8. INCIVEK [Suspect]
     Indication: HEPATITIS C
     Route: 048
     Dates: start: 20120103

REACTIONS (1)
  - RASH MACULO-PAPULAR [None]
